FAERS Safety Report 9659476 (Version 2)
Quarter: 2013Q4

REPORT INFORMATION
  Report Type: Report from Study
  Country: BE (occurrence: BE)
  Receive Date: 20131031
  Receipt Date: 20131110
  Transmission Date: 20140711
  Serious: Yes (Death, Other)
  Sender: FDA-Public Use
  Company Number: PHHY2013BE122001

PATIENT
  Sex: Female
  Weight: 50 kg

DRUGS (2)
  1. ONBREZ [Suspect]
     Dosage: 150 UG, QD
     Dates: start: 20130306
  2. IPRATROPIUM BROMIDE AND SALBUTAMOL SULFATE [Concomitant]
     Indication: CHRONIC OBSTRUCTIVE PULMONARY DISEASE

REACTIONS (4)
  - Sudden death [Fatal]
  - Cardiac failure [Fatal]
  - Lung infection [Fatal]
  - Generalised oedema [Fatal]
